FAERS Safety Report 6411812-7 (Version None)
Quarter: 2009Q4

REPORT INFORMATION
  Report Type: 
  Country: None (occurrence: None)
  Receive Date: 20091023
  Receipt Date: 20091016
  Transmission Date: 20100525
  Serious: Yes (Hospitalization)
  Sender: FDA-Public Use
  Company Number: SE-ASTRAZENECA-2009SE20702

PATIENT
  Age: 73 Year

DRUGS (4)
  1. LOSEC [Suspect]
     Indication: DYSPEPSIA
     Route: 048
  2. LOSEC [Suspect]
     Route: 048
     Dates: start: 20081216, end: 20090116
  3. GLUCOSINE [Concomitant]
     Indication: MUSCULOSKELETAL DISCOMFORT
     Route: 065
  4. RENITEC [Concomitant]
     Route: 065

REACTIONS (6)
  - BLOOD CREATINE PHOSPHOKINASE INCREASED [None]
  - BODY TEMPERATURE INCREASED [None]
  - DECREASED APPETITE [None]
  - DIARRHOEA [None]
  - NAUSEA [None]
  - TUBULOINTERSTITIAL NEPHRITIS [None]
